FAERS Safety Report 5056875-9 (Version None)
Quarter: 2006Q2

REPORT INFORMATION
  Report Type: 
  Country: None (occurrence: None)
  Receive Date: 20060620
  Receipt Date: 20051021
  Transmission Date: 20061013
  Serious: Yes (Disabling)
  Sender: FDA-Public Use
  Company Number: M-05-445

PATIENT
  Sex: Male

DRUGS (8)
  1. PACERONE [Suspect]
     Indication: ATRIAL FIBRILLATION
     Dosage: 200MG, QD, PO
     Route: 047
     Dates: start: 20020730, end: 20020801
  2. PACERONE [Suspect]
     Indication: ATRIAL FIBRILLATION
     Dosage: 300MG, QD, PO
     Route: 048
     Dates: start: 20020430, end: 20020729
  3. PACERONE [Suspect]
     Dosage: 200MG, BID, PO
     Route: 048
     Dates: start: 20020129, end: 20020429
  4. PACERONE [Suspect]
     Dosage: 200MG, BID, PO
     Route: 048
     Dates: start: 20011001, end: 20020128
  5. COUMADIN [Concomitant]
  6. TENORMIN [Concomitant]
  7. LANOXIN [Concomitant]
  8. CENTRUM SILVER [Concomitant]

REACTIONS (2)
  - BLINDNESS [None]
  - OPTIC NEURITIS [None]
